FAERS Safety Report 12930118 (Version 1)
Quarter: 2016Q4

REPORT INFORMATION
  Report Type: Spontaneous
  Country: US (occurrence: US)
  Receive Date: 20161111
  Receipt Date: 20161111
  Transmission Date: 20170207
  Serious: Yes (Other)
  Sender: FDA-Public Use
  Company Number: None

PATIENT
  Age: 46 Year
  Sex: Male

DRUGS (1)
  1. LEVOFLOXACIN, 500MG [Suspect]
     Active Substance: LEVOFLOXACIN
     Route: 048
     Dates: start: 20161108, end: 20161109

REACTIONS (2)
  - Muscle spasms [None]
  - Tendon disorder [None]

NARRATIVE: CASE EVENT DATE: 20161108
